FAERS Safety Report 20538879 (Version 1)
Quarter: 2022Q1

REPORT INFORMATION
  Report Type: Report from Study
  Country: US (occurrence: US)
  Receive Date: 20220302
  Receipt Date: 20220302
  Transmission Date: 20220423
  Serious: Yes (Other)
  Sender: FDA-Public Use
  Company Number: US-JAZZ-2022-US-005128

PATIENT
  Sex: Female

DRUGS (13)
  1. XYREM [Suspect]
     Active Substance: SODIUM OXYBATE
     Indication: Narcolepsy
     Dosage: 1.25 GRAM, BID
     Route: 048
     Dates: start: 201410, end: 201501
  2. XYREM [Suspect]
     Active Substance: SODIUM OXYBATE
     Indication: Cataplexy
     Dosage: DOSE ADJUSTMENT
     Route: 048
     Dates: start: 201501, end: 202202
  3. XYREM [Suspect]
     Active Substance: SODIUM OXYBATE
     Indication: Somnolence
     Dosage: 4.5 GRAM, BID
     Route: 048
     Dates: start: 202202
  4. HYDROXYZINE HYDROCHLORIDE [Suspect]
     Active Substance: HYDROXYZINE HYDROCHLORIDE
     Indication: Anxiety
     Dosage: EVERY 6H, AS NEEDED
     Dates: start: 20220124
  5. GABAPENTIN [Concomitant]
     Active Substance: GABAPENTIN
     Dosage: 0000
     Dates: start: 20101001
  6. OMEPRAZOLE [Concomitant]
     Active Substance: OMEPRAZOLE
     Dosage: 0000
     Dates: start: 20140701
  7. FAMOTIDINE [Concomitant]
     Active Substance: FAMOTIDINE
     Dosage: 0000
     Dates: start: 20101001
  8. ASPIRIN [Concomitant]
     Active Substance: ASPIRIN
     Dosage: 0000
     Dates: start: 20111001
  9. TOPAMAX [Concomitant]
     Active Substance: TOPIRAMATE
     Dosage: 0000
     Dates: start: 20160401
  10. FLAXSEED OIL [LINUM USITATISSIMUM OIL] [Concomitant]
     Dosage: 0010
     Dates: start: 20190808
  11. EMGALITY [Concomitant]
     Active Substance: GALCANEZUMAB-GNLM
     Dosage: 0000
     Dates: start: 20190801
  12. TRAMADOL HCL [Concomitant]
     Active Substance: TRAMADOL HYDROCHLORIDE
     Dosage: 0000
     Dates: start: 20210215
  13. REXULTI [Concomitant]
     Active Substance: BREXPIPRAZOLE
     Dosage: 0000
     Dates: start: 20220114

REACTIONS (2)
  - Seizure [Unknown]
  - Hyperventilation [Unknown]
